FAERS Safety Report 7367136-7 (Version None)
Quarter: 2011Q1

REPORT INFORMATION
  Report Type: 
  Country: None (occurrence: None)
  Receive Date: 20110322
  Receipt Date: 20110311
  Transmission Date: 20110831
  Serious: Yes (Death)
  Sender: FDA-Public Use
  Company Number: GT-PFIZER INC-2011061450

PATIENT
  Sex: Male

DRUGS (1)
  1. PANTECTA [Suspect]
     Dosage: 40 MG, UNK

REACTIONS (2)
  - LIVER DISORDER [None]
  - OESOPHAGEAL DISORDER [None]
